FAERS Safety Report 5583783-7 (Version None)
Quarter: 2008Q1

REPORT INFORMATION
  Report Type: 
  Country: None (occurrence: None)
  Receive Date: 20080103
  Receipt Date: 20080103
  Transmission Date: 20080703
  Serious: Yes (Other)
  Sender: FDA-Public Use
  Company Number: None

PATIENT
  Sex: Female
  Weight: 68.0396 kg

DRUGS (1)
  1. PHENTERMINE [Suspect]
     Indication: APPETITE DISORDER
     Dosage: 1/2 OF 37.5 MG  ONCE A DAY  PO
     Route: 048

REACTIONS (7)
  - ALOPECIA [None]
  - BLOOD URIC ACID INCREASED [None]
  - GOUT [None]
  - LOCALISED INFECTION [None]
  - PAIN IN EXTREMITY [None]
  - SKIN DISCOLOURATION [None]
  - TOE OPERATION [None]
